FAERS Safety Report 18715757 (Version 1)
Quarter: 2021Q1

REPORT INFORMATION
  Report Type: Spontaneous
  Country: US (occurrence: US)
  Receive Date: 20210108
  Receipt Date: 20210108
  Transmission Date: 20210419
  Serious: Yes (Other)
  Sender: FDA-Public Use
  Company Number: US-ACCORD-214011

PATIENT
  Age: 69 Year
  Sex: Female

DRUGS (8)
  1. METHOTREXATE. [Suspect]
     Active Substance: METHOTREXATE
     Indication: CUTANEOUS T-CELL LYMPHOMA
  2. DOXORUBICIN [Suspect]
     Active Substance: DOXORUBICIN
     Indication: ACUTE KIDNEY INJURY
     Dosage: SYSTEMIC
  3. DEXAMETHASONE. [Suspect]
     Active Substance: DEXAMETHASONE
     Indication: CUTANEOUS T-CELL LYMPHOMA
  4. CYTARABINE. [Suspect]
     Active Substance: CYTARABINE
     Indication: CUTANEOUS T-CELL LYMPHOMA
  5. DOXORUBICIN [Suspect]
     Active Substance: DOXORUBICIN
     Indication: CUTANEOUS T-CELL LYMPHOMA
     Dosage: SYSTEMIC
  6. METHOTREXATE. [Suspect]
     Active Substance: METHOTREXATE
     Indication: ACUTE KIDNEY INJURY
  7. CYTARABINE. [Suspect]
     Active Substance: CYTARABINE
     Indication: ACUTE KIDNEY INJURY
  8. DEXAMETHASONE. [Suspect]
     Active Substance: DEXAMETHASONE
     Indication: ACUTE KIDNEY INJURY

REACTIONS (5)
  - Mucosal inflammation [Recovered/Resolved]
  - Gastrointestinal haemorrhage [Recovered/Resolved]
  - Shock [Recovered/Resolved]
  - Febrile neutropenia [Recovered/Resolved]
  - Off label use [Unknown]
